FAERS Safety Report 14276865 (Version 2)
Quarter: 2018Q1

REPORT INFORMATION
  Report Type: Spontaneous
  Country: NL (occurrence: NL)
  Receive Date: 20171211
  Receipt Date: 20180125
  Transmission Date: 20180508
  Serious: Yes (Life-Threatening, Disabling)
  Sender: FDA-Public Use
  Company Number: NL-OTSUKA-2015_017504

PATIENT
  Age: 18 Year
  Sex: Male
  Weight: 130 kg

DRUGS (2)
  1. RISPERDAL [Suspect]
     Active Substance: RISPERIDONE
     Indication: SUSPICIOUSNESS
     Dosage: 1 DF, UNK (1DF= 3 TIMES PER DAY AT A TOTAL DOSE OF 6 MG)
     Route: 048
     Dates: start: 20131030, end: 20150519
  2. ABILIFY [Suspect]
     Active Substance: ARIPIPRAZOLE
     Indication: SUSPICIOUSNESS
     Dosage: 15 MG, TID (1DF=3 TIMES PER DAY AT 15 MG TOTAL DOSE)
     Route: 048
     Dates: start: 20131030, end: 20150519

REACTIONS (3)
  - Post-traumatic stress disorder [Not Recovered/Not Resolved]
  - Eye pain [Not Recovered/Not Resolved]
  - Off label use [Unknown]

NARRATIVE: CASE EVENT DATE: 20140924
